FAERS Safety Report 25824290 (Version 3)
Quarter: 2025Q4

REPORT INFORMATION
  Report Type: Spontaneous
  Country: US (occurrence: US)
  Receive Date: 20250919
  Receipt Date: 20251014
  Transmission Date: 20260118
  Serious: No
  Sender: AMGEN
  Company Number: US-AMGEN-USASP2025187647

PATIENT
  Age: 38 Year
  Sex: Female

DRUGS (10)
  1. OTEZLA [Suspect]
     Active Substance: APREMILAST
     Indication: Psoriasis
     Dosage: 60 MILLIGRAM (OTEZLA STARTE PACK, HAS TITRATION DIRECTION, ONE 10 MG TAB PO DAY 1 TWO 10 MG TS PO DA
     Route: 048
     Dates: start: 20250826
  2. HYDROCORTISONE [Concomitant]
     Active Substance: HYDROCORTISONE
  3. HYDROCORTISONE [Concomitant]
     Active Substance: HYDROCORTISONE
     Dosage: 28.35 GRAM
  4. TRIAMCINOLONE [Concomitant]
     Active Substance: TRIAMCINOLONE
     Dosage: 15 GRAM
  5. TRIAMCINOLONE [Concomitant]
     Active Substance: TRIAMCINOLONE
     Dosage: 0.1 PERCENT OINTMENT 15 GRAM
  6. AZELASTINE [Concomitant]
     Active Substance: AZELASTINE
     Dosage: (137MCG) NASAL-200SP
  7. CLOBETASOL [Concomitant]
     Active Substance: CLOBETASOL
     Dosage: 25 MILLIGRAM
  8. FLUTICASONE [Concomitant]
     Active Substance: FLUTICASONE
     Dosage: 50 MCG SP
  9. TACROLIMUS [Concomitant]
     Active Substance: TACROLIMUS
     Dosage: 30 GRAM
  10. TRETINOIN [Concomitant]
     Active Substance: TRETINOIN
     Dosage: 20 GRAM

REACTIONS (3)
  - Diarrhoea [Not Recovered/Not Resolved]
  - Nausea [Not Recovered/Not Resolved]
  - Vomiting [Not Recovered/Not Resolved]

NARRATIVE: CASE EVENT DATE: 20250903
